FAERS Safety Report 11507643 (Version 1)
Quarter: 2015Q3

REPORT INFORMATION
  Report Type: Spontaneous
  Country: US (occurrence: None)
  Receive Date: 20150914
  Receipt Date: 20150914
  Transmission Date: 20151125
  Serious: Yes (Life-Threatening, Hospitalization, Disabling)
  Sender: FDA-Public Use
  Company Number: None

PATIENT
  Age: 54 Year
  Sex: Female
  Weight: 86.18 kg

DRUGS (6)
  1. CETIRIZINE HYDROCHLORIDE TABLETS 10 MG BJWC [Suspect]
     Active Substance: CETIRIZINE HYDROCHLORIDE
     Indication: SEASONAL ALLERGY
     Route: 048
     Dates: start: 20150327, end: 20150327
  2. HCTZ [Concomitant]
     Active Substance: HYDROCHLOROTHIAZIDE
  3. CENTRUM MULTI-VITAMIN [Concomitant]
  4. LORATADINE. [Concomitant]
     Active Substance: LORATADINE
  5. VITAMIN C [Concomitant]
     Active Substance: ASCORBIC ACID
  6. CALCIUM SUPPLEMENT WITH 800 IU VIT. D3 [Concomitant]

REACTIONS (12)
  - Confusional state [None]
  - Cold sweat [None]
  - Nausea [None]
  - Anxiety [None]
  - Fall [None]
  - Somnolence [None]
  - Face injury [None]
  - Loss of consciousness [None]
  - Seizure [None]
  - Feeling abnormal [None]
  - Laceration [None]
  - Cardiac arrest [None]

NARRATIVE: CASE EVENT DATE: 20150327
